FAERS Safety Report 16112784 (Version 1)
Quarter: 2019Q1

REPORT INFORMATION
  Report Type: Spontaneous
  Country: DE (occurrence: DE)
  Receive Date: 20190325
  Receipt Date: 20190325
  Transmission Date: 20190418
  Serious: Yes (Other)
  Sender: FDA-Public Use
  Company Number: DE-SA-2019SA027600

PATIENT
  Age: 81 Year
  Sex: Male

DRUGS (6)
  1. AMLODIPINE [Concomitant]
     Active Substance: AMLODIPINE BESYLATE
  2. XIPAMIDE [Concomitant]
     Active Substance: XIPAMIDE
     Indication: HYPERTENSION
     Route: 048
  3. TORASEMIDE [Concomitant]
     Active Substance: TORSEMIDE
  4. IBUPROFEN. [Concomitant]
     Active Substance: IBUPROFEN
  5. DOXAZOSIN [Concomitant]
     Active Substance: DOXAZOSIN\DOXAZOSIN MESYLATE
     Indication: PROSTATE CANCER
  6. DUPIXENT [Suspect]
     Active Substance: DUPILUMAB
     Indication: DERMATITIS ATOPIC
     Dosage: 600 MG, 1X
     Route: 058
     Dates: start: 20190117, end: 20190117

REACTIONS (5)
  - Serum sickness-like reaction [Recovering/Resolving]
  - Skin necrosis [Recovering/Resolving]
  - Pruritus [Recovering/Resolving]
  - Tremor [Recovering/Resolving]
  - Body temperature increased [Recovering/Resolving]

NARRATIVE: CASE EVENT DATE: 20190118
